FAERS Safety Report 6195579-6 (Version None)
Quarter: 2009Q2

REPORT INFORMATION
  Report Type: 
  Country: None (occurrence: None)
  Receive Date: 20090519
  Receipt Date: 20090515
  Transmission Date: 20091009
  Serious: Yes (Life-Threatening, Other)
  Sender: FDA-Public Use
  Company Number: PHEH2009US04187

PATIENT
  Sex: Female

DRUGS (6)
  1. GLEEVEC [Suspect]
     Dosage: 400 MG, UNK
     Dates: start: 20080901, end: 20090401
  2. METFORMIN HCL [Interacting]
  3. ANTIBIOTICS [Interacting]
  4. ANALGESICS [Suspect]
  5. IBUPROFEN [Interacting]
  6. AMBIEN [Interacting]

REACTIONS (22)
  - AMNESIA [None]
  - ANXIETY [None]
  - ASTHENIA [None]
  - BLOOD COUNT ABNORMAL [None]
  - COGNITIVE DISORDER [None]
  - COUGH [None]
  - DEPRESSION [None]
  - DIPLOPIA [None]
  - DIZZINESS [None]
  - DRUG INTERACTION [None]
  - EUSTACHIAN TUBE DISORDER [None]
  - FEELING ABNORMAL [None]
  - FLUID RETENTION [None]
  - INSOMNIA [None]
  - MALAISE [None]
  - MENTAL DISORDER [None]
  - OEDEMA PERIPHERAL [None]
  - RESPIRATORY DISORDER [None]
  - TREMOR [None]
  - VERTIGO [None]
  - VISION BLURRED [None]
  - WEIGHT INCREASED [None]
